FAERS Safety Report 10897228 (Version 1)
Quarter: 2015Q1

REPORT INFORMATION
  Report Type: Spontaneous
  Country: US (occurrence: US)
  Receive Date: 20150309
  Receipt Date: 20150309
  Transmission Date: 20150721
  Serious: Yes (Other)
  Sender: FDA-Public Use
  Company Number: US-PFIZER INC-2015080417

PATIENT
  Sex: Male

DRUGS (1)
  1. VFEND [Suspect]
     Active Substance: VORICONAZOLE
     Dosage: 300 MG (1 AND HALF TABLET) , 2X/DAY
     Route: 048
     Dates: start: 2013

REACTIONS (2)
  - Seizure [Unknown]
  - Malaise [Unknown]
